FAERS Safety Report 4737137-3 (Version None)
Quarter: 2005Q3

REPORT INFORMATION
  Report Type: 
  Country: None (occurrence: None)
  Receive Date: 20050728
  Receipt Date: 20050616
  Transmission Date: 20060218
  Serious: No
  Sender: FDA-Public Use
  Company Number: 200515061US

PATIENT
  Age: 41 Year
  Sex: Female
  Weight: 58 kg

DRUGS (5)
  1. KETEK [Suspect]
     Indication: BRONCHITIS
     Dosage: 800 MG/DAY
     Dates: start: 20050615
  2. KETEK [Suspect]
     Indication: SINUSITIS
     Dosage: 800 MG/DAY
     Dates: start: 20050615
  3. ZITHROMAX [Concomitant]
  4. DIPHENHYDRAMINE HYDROCHLORIDE (BENADRYL /OLD FORM/) [Concomitant]
  5. THIAZIDE [Concomitant]

REACTIONS (2)
  - DIZZINESS [None]
  - VISION BLURRED [None]
